FAERS Safety Report 14112141 (Version 6)
Quarter: 2018Q2

REPORT INFORMATION
  Report Type: Spontaneous
  Country: DE (occurrence: DE)
  Receive Date: 20171020
  Receipt Date: 20180501
  Transmission Date: 20180711
  Serious: Yes (Death, Hospitalization)
  Sender: FDA-Public Use
  Company Number: DE-INTERCEPT-PMOCA2017001168

PATIENT

DRUGS (2)
  1. URSODEOXYCHOLIC ACID [Concomitant]
     Active Substance: URSODIOL
     Dosage: 750 MG, QD
  2. OCALIVA [Suspect]
     Active Substance: OBETICHOLIC ACID
     Indication: CHOLANGITIS
     Dosage: 5 MG, QD
     Route: 065
     Dates: start: 20170721, end: 20170920

REACTIONS (22)
  - Cholelithiasis [None]
  - Hepatic lesion [None]
  - Coagulopathy [None]
  - Pruritus [Unknown]
  - Splenomegaly [None]
  - Arthralgia [Unknown]
  - Cholelithiasis [Unknown]
  - Blood albumin decreased [None]
  - Portal vein flow decreased [None]
  - Hepatic fibrosis [None]
  - Cholecystitis [None]
  - Gastric varices [None]
  - Hepatic cirrhosis [None]
  - Hepatic failure [Unknown]
  - Child-Pugh-Turcotte score increased [Unknown]
  - Hepatocellular carcinoma [Unknown]
  - Death [Fatal]
  - Cholecystitis [Unknown]
  - Hypokalaemia [None]
  - Bile duct stenosis [None]
  - Hypoalbuminaemia [None]
  - Varices oesophageal [None]

NARRATIVE: CASE EVENT DATE: 2017
